FAERS Safety Report 8615266-1 (Version None)
Quarter: 2012Q3

REPORT INFORMATION
  Report Type: 
  Country: None (occurrence: None)
  Receive Date: 20120823
  Receipt Date: 20120814
  Transmission Date: 20120928
  Serious: Yes (Other)
  Sender: FDA-Public Use
  Company Number: ES-009507513-1208ESP000527

PATIENT

DRUGS (2)
  1. PROGESTERONE [Concomitant]
     Dosage: UNK MG, UNK
     Route: 065
  2. GANIRELIX ACETATE [Suspect]
     Indication: OVULATION INDUCTION
     Route: 058

REACTIONS (1)
  - MULTIPLE SCLEROSIS RELAPSE [None]
